FAERS Safety Report 22233193 (Version 1)
Quarter: 2023Q2

REPORT INFORMATION
  Report Type: Spontaneous
  Country: US (occurrence: None)
  Receive Date: 20230420
  Receipt Date: 20230420
  Transmission Date: 20230722
  Serious: No
  Sender: FDA-Public Use
  Company Number: US-ROCHE-3057594

PATIENT
  Age: 74 Year
  Sex: Male

DRUGS (2)
  1. ESBRIET [Suspect]
     Active Substance: PIRFENIDONE
     Indication: Idiopathic pulmonary fibrosis
     Dosage: THREE TIMES DAILY
     Route: 048
     Dates: start: 20211026
  2. ESBRIET [Suspect]
     Active Substance: PIRFENIDONE
     Route: 048
     Dates: start: 20211210, end: 202204

REACTIONS (2)
  - Headache [Unknown]
  - Parosmia [Unknown]

NARRATIVE: CASE EVENT DATE: 20220201
